FAERS Safety Report 6375327-7 (Version None)
Quarter: 2009Q3

REPORT INFORMATION
  Report Type: 
  Country: None (occurrence: None)
  Receive Date: 20090924
  Receipt Date: 20090918
  Transmission Date: 20100115
  Serious: Yes (Other)
  Sender: FDA-Public Use
  Company Number: B0593816A

PATIENT
  Sex: Male

DRUGS (4)
  1. RELENZA [Suspect]
     Indication: INFLUENZA
     Dosage: 10MG TWICE PER DAY
     Route: 055
     Dates: start: 20090911, end: 20090911
  2. FLOMOX [Suspect]
     Route: 048
  3. ASTOMIN [Suspect]
     Route: 048
  4. MUCOSOLVAN [Suspect]
     Route: 048

REACTIONS (4)
  - ANAPHYLACTOID SHOCK [None]
  - COLD SWEAT [None]
  - MALAISE [None]
  - PALLOR [None]
